FAERS Safety Report 8481216-4 (Version None)
Quarter: 2012Q2

REPORT INFORMATION
  Report Type: 
  Country: None (occurrence: None)
  Receive Date: 20120625
  Receipt Date: 20120612
  Transmission Date: 20120825
  Serious: Yes (Other)
  Sender: FDA-Public Use
  Company Number: FK201201708

PATIENT
  Age: 14 Year
  Sex: Male

DRUGS (5)
  1. IFOSFAMIDE [Suspect]
     Indication: BONE SARCOMA
     Dosage: 4200
  2. ETOPOSIDE [Suspect]
     Indication: BONE SARCOMA
     Dosage: 84 MG
  3. CISPLATIN [Suspect]
     Indication: BONE SARCOMA
     Dosage: 167 MG
  4. METHOTREXATE [Suspect]
     Indication: BONE SARCOMA
     Dosage: 28 MG
  5. DOXORUBICIN HCL [Suspect]
     Indication: BONE SARCOMA
     Dosage: 42 MG

REACTIONS (6)
  - VOMITING [None]
  - HEARING IMPAIRED [None]
  - OESOPHAGEAL STENOSIS [None]
  - DYSPHAGIA [None]
  - NAUSEA [None]
  - HYPOPHAGIA [None]
